FAERS Safety Report 24444402 (Version 1)
Quarter: 2024Q4

REPORT INFORMATION
  Report Type: Spontaneous
  Country: US (occurrence: None)
  Receive Date: 20241015
  Receipt Date: 20241015
  Transmission Date: 20250115
  Serious: Yes (Hospitalization)
  Sender: Public
  Company Number: None

PATIENT
  Age: 64 Year
  Sex: Male

DRUGS (1)
  1. NAPROXEN SODIUM [Suspect]
     Active Substance: NAPROXEN SODIUM
     Indication: Pain

REACTIONS (4)
  - Gastrointestinal haemorrhage [None]
  - Anaemia macrocytic [None]
  - Duodenitis [None]
  - Large intestine polyp [None]

NARRATIVE: CASE EVENT DATE: 20240712
